FAERS Safety Report 4844750-1 (Version None)
Quarter: 2005Q4

REPORT INFORMATION
  Report Type: 
  Country: None (occurrence: None)
  Receive Date: 20051129
  Receipt Date: 20051122
  Transmission Date: 20060501
  Serious: Yes (Other)
  Sender: FDA-Public Use
  Company Number: NLWYE161822NOV05

PATIENT
  Age: 61 Year
  Sex: Female

DRUGS (2)
  1. EFFEXOR [Suspect]
     Indication: DEPRESSION
     Dosage: 75 MG 1X PER 1 DAY, ORAL
     Route: 048
     Dates: start: 20040316, end: 20040601
  2. RISPERDAL [Concomitant]

REACTIONS (2)
  - BRUXISM [None]
  - TOOTH INJURY [None]
